FAERS Safety Report 8506497-X (Version None)
Quarter: 2012Q3

REPORT INFORMATION
  Report Type: 
  Country: None (occurrence: None)
  Receive Date: 20120706
  Receipt Date: 20120706
  Transmission Date: 20120928
  Serious: No
  Sender: FDA-Public Use
  Company Number: None

PATIENT
  Age: 86 Year
  Sex: Female
  Weight: 54.4316 kg

DRUGS (1)
  1. PHENERGAN HCL [Suspect]
     Dosage: 25 G IV X 1, X1 DOSE

REACTIONS (2)
  - APHASIA [None]
  - RESTLESSNESS [None]
